FAERS Safety Report 7119088-2 (Version None)
Quarter: 2010Q4

REPORT INFORMATION
  Report Type: 
  Country: None (occurrence: None)
  Receive Date: 20101123
  Receipt Date: 20101117
  Transmission Date: 20110411
  Serious: Yes (Other)
  Sender: FDA-Public Use
  Company Number: B0685262A

PATIENT
  Age: 67 Year
  Sex: Male

DRUGS (1)
  1. AUGMENTIN '125' [Suspect]
     Indication: ANTIBIOTIC PROPHYLAXIS
     Route: 048
     Dates: start: 20100101, end: 20100101

REACTIONS (2)
  - CLOSTRIDIUM DIFFICILE COLITIS [None]
  - WEIGHT DECREASED [None]
